FAERS Safety Report 5706575-4 (Version None)
Quarter: 2008Q2

REPORT INFORMATION
  Report Type: 
  Country: None (occurrence: None)
  Receive Date: 20080414
  Receipt Date: 20080407
  Transmission Date: 20081010
  Serious: Yes (Hospitalization)
  Sender: FDA-Public Use
  Company Number: L08-SGP-01369-01

PATIENT
  Age: 76 Year
  Sex: Male

DRUGS (5)
  1. DILTIAZEM [Suspect]
     Indication: HYPERTENSION
     Dosage: 90 MG QD
  2. SILDENAFIL CITRATE [Suspect]
     Dosage: 3 CAPSULE QAM
  3. SILDENAFIL CITRATE [Suspect]
     Dosage: 1 CAPSULE
  4. ATENOLOL [Concomitant]
  5. SIMVASTATIN [Concomitant]

REACTIONS (6)
  - BLINDNESS [None]
  - BLOOD ALBUMIN DECREASED [None]
  - CATARACT [None]
  - GAMMA-GLUTAMYLTRANSFERASE INCREASED [None]
  - MYDRIASIS [None]
  - OPTIC ISCHAEMIC NEUROPATHY [None]
